FAERS Safety Report 5195076-0 (Version None)
Quarter: 2006Q4

REPORT INFORMATION
  Report Type: 
  Country: None (occurrence: None)
  Receive Date: 20061229
  Receipt Date: 20061221
  Transmission Date: 20070319
  Serious: Yes (Other)
  Sender: FDA-Public Use
  Company Number: CA-JNJFOC-20061206740

PATIENT
  Weight: 61 kg

DRUGS (6)
  1. REMINYL [Suspect]
     Indication: DRUG USE FOR UNKNOWN INDICATION
  2. ARTHROTEC [Concomitant]
  3. TRAZODONE HCL [Concomitant]
  4. HYDROXIZINE [Concomitant]
  5. ADVAIR DISKUS 100/50 [Concomitant]
  6. ZYPREXA [Concomitant]
     Route: 060

REACTIONS (1)
  - WHITE BLOOD CELL COUNT DECREASED [None]
